FAERS Safety Report 12676427 (Version 1)
Quarter: 2016Q3

REPORT INFORMATION
  Report Type: Spontaneous
  Country: AU (occurrence: AU)
  Receive Date: 20160823
  Receipt Date: 20160823
  Transmission Date: 20161109
  Serious: Yes (Other)
  Sender: FDA-Public Use
  Company Number: AU-ALEXION PHARMACEUTICALS INC-A201606018

PATIENT
  Age: 25 Year
  Sex: Male

DRUGS (6)
  1. LABETALOL [Suspect]
     Active Substance: LABETALOL\LABETALOL HYDROCHLORIDE
     Indication: MALIGNANT HYPERTENSION
     Dosage: 200 MG, 2-3 TIMES DAILY
     Route: 065
  2. RAMIPRIL. [Suspect]
     Active Substance: RAMIPRIL
     Indication: MALIGNANT HYPERTENSION
     Dosage: 5 MG, QD
     Route: 065
  3. SOLIRIS [Suspect]
     Active Substance: ECULIZUMAB
     Indication: HAEMOLYTIC URAEMIC SYNDROME
     Dosage: UNK
     Route: 042
  4. SOLIRIS [Suspect]
     Active Substance: ECULIZUMAB
     Dosage: 1200 MG, Q2W
     Route: 042
  5. SOLIRIS [Suspect]
     Active Substance: ECULIZUMAB
     Dosage: 1200 MG, Q2W
     Route: 042
  6. LERCANIDIPINE [Suspect]
     Active Substance: LERCANIDIPINE
     Indication: MALIGNANT HYPERTENSION
     Dosage: 20 MG, QD
     Route: 065

REACTIONS (9)
  - Seizure [Unknown]
  - Headache [Unknown]
  - Nausea [Unknown]
  - Lethargy [Unknown]
  - Haemolytic uraemic syndrome [Unknown]
  - Haptoglobin decreased [Recovered/Resolved]
  - Malignant hypertension [Recovered/Resolved]
  - Platelet count decreased [Not Recovered/Not Resolved]
  - Blood creatinine increased [Recovering/Resolving]
